FAERS Safety Report 21166805 (Version 2)
Quarter: 2023Q1

REPORT INFORMATION
  Report Type: Spontaneous
  Country: US (occurrence: US)
  Receive Date: 20220803
  Receipt Date: 20230130
  Transmission Date: 20230417
  Serious: No
  Sender: FDA-Public Use
  Company Number: US-SAREPTA THERAPEUTICS INC.-SRP2022-002384

PATIENT
  Age: 21 Year
  Sex: Male
  Weight: 36.281 kg

DRUGS (2)
  1. AMONDYS 45 [Suspect]
     Active Substance: CASIMERSEN
     Indication: Product used for unknown indication
     Dosage: 1170 MILLIGRAM, WEEKLY
  2. AMONDYS 45 [Suspect]
     Active Substance: CASIMERSEN
     Dosage: 1170 MILLIGRAM, WEEKLY
     Dates: start: 20220725

REACTIONS (3)
  - Insurance issue [Unknown]
  - Product dose omission issue [Unknown]
  - No adverse event [Unknown]

NARRATIVE: CASE EVENT DATE: 20220720
